FAERS Safety Report 6216259-4 (Version None)
Quarter: 2009Q2

REPORT INFORMATION
  Report Type: 
  Country: None (occurrence: None)
  Receive Date: 20090605
  Receipt Date: 20090529
  Transmission Date: 20091009
  Serious: Yes (Other)
  Sender: FDA-Public Use
  Company Number: B0569957A

PATIENT
  Sex: Female

DRUGS (4)
  1. PAXIL [Suspect]
     Indication: PANIC DISORDER
     Dosage: 15MG PER DAY
     Route: 048
     Dates: start: 20030320, end: 20090413
  2. MEILAX [Concomitant]
     Dosage: .5MG PER DAY
     Route: 048
     Dates: start: 20031106
  3. LENDORMIN [Concomitant]
     Dosage: .125MG PER DAY
     Route: 048
  4. EVAMYL [Concomitant]
     Route: 048

REACTIONS (3)
  - AGGRESSION [None]
  - ANGER [None]
  - IMPULSIVE BEHAVIOUR [None]
